FAERS Safety Report 5446726-2 (Version None)
Quarter: 2007Q3

REPORT INFORMATION
  Report Type: 
  Country: None (occurrence: None)
  Receive Date: 20070731
  Receipt Date: 20070620
  Transmission Date: 20080115
  Serious: No
  Sender: FDA-Public Use
  Company Number: US200706004832

PATIENT
  Age: 28 Year
  Sex: Female

DRUGS (2)
  1. BYETTA [Suspect]
     Indication: WEIGHT DECREASED
     Dosage: 10 UG
  2. EXENATIDE [Concomitant]

REACTIONS (1)
  - ALOPECIA [None]
